FAERS Safety Report 4512207-3 (Version None)
Quarter: 2004Q4

REPORT INFORMATION
  Report Type: 
  Country: None (occurrence: None)
  Receive Date: 20041123
  Receipt Date: 20041112
  Transmission Date: 20050328
  Serious: Yes (Hospitalization)
  Sender: FDA-Public Use
  Company Number: MEDI-0002427

PATIENT
  Age: 57 Year
  Sex: Male
  Weight: 101.1521 kg

DRUGS (8)
  1. ETHYOL [Suspect]
     Indication: CHEMOTHERAPY
     Dosage: 200 MG/M2, SUBCUTANEOUS
     Route: 058
     Dates: start: 20040928, end: 20041007
  2. ETHYOL [Suspect]
     Indication: RADIOTHERAPY
     Dosage: 200 MG/M2, SUBCUTANEOUS
     Route: 058
     Dates: start: 20040928, end: 20041007
  3. RADIATION THERAPY [Concomitant]
  4. CISPLATIN [Concomitant]
  5. DEXAMETHASONE [Concomitant]
  6. LORAZEPAM [Concomitant]
  7. LEVAQUIN [Concomitant]
  8. ALOXI [Concomitant]

REACTIONS (11)
  - CHILLS [None]
  - CYANOSIS [None]
  - DERMATITIS EXFOLIATIVE [None]
  - DIARRHOEA [None]
  - HYPOTENSION [None]
  - MUCOSAL INFLAMMATION [None]
  - PYREXIA [None]
  - RASH [None]
  - RENAL FAILURE [None]
  - RESPIRATORY ARREST [None]
  - SEPSIS [None]
